FAERS Safety Report 7251293-7 (Version None)
Quarter: 2011Q1

REPORT INFORMATION
  Report Type: 
  Country: None (occurrence: None)
  Receive Date: 20110128
  Receipt Date: 20110120
  Transmission Date: 20110831
  Serious: Yes (Other)
  Sender: FDA-Public Use
  Company Number: DE-AMGEN-DEUSP2010006935

PATIENT
  Sex: Female

DRUGS (1)
  1. PROLIA [Suspect]
     Indication: PRODUCT USED FOR UNKNOWN INDICATION
     Dosage: UNK
     Dates: start: 20101110

REACTIONS (4)
  - CONSTIPATION [None]
  - GASTRITIS HAEMORRHAGIC [None]
  - ABDOMINAL DISCOMFORT [None]
  - GASTRIC CYST [None]
